FAERS Safety Report 19534642 (Version 1)
Quarter: 2021Q3

REPORT INFORMATION
  Report Type: Spontaneous
  Country: US (occurrence: US)
  Receive Date: 20210713
  Receipt Date: 20210713
  Transmission Date: 20211014
  Serious: Yes (Hospitalization, Other)
  Sender: FDA-Public Use
  Company Number: US-ASTRAZENECA-2021A614255

PATIENT
  Sex: Female

DRUGS (10)
  1. FASLODEX [Suspect]
     Active Substance: FULVESTRANT
     Indication: BREAST CANCER METASTATIC
     Dosage: 100.0MG UNKNOWN
     Route: 030
     Dates: start: 201605
  2. TAMOXIFEN [Concomitant]
     Active Substance: TAMOXIFEN
     Route: 065
  3. FASLODEX [Suspect]
     Active Substance: FULVESTRANT
     Indication: BREAST CANCER METASTATIC
     Dosage: 100.0MG UNKNOWN
     Route: 030
     Dates: start: 2018
  4. ANASTROZOLE. [Suspect]
     Active Substance: ANASTROZOLE
     Route: 048
     Dates: start: 2015
  5. XGEVA [Concomitant]
     Active Substance: DENOSUMAB
     Route: 065
     Dates: start: 201605
  6. TAMOXIFEN [Concomitant]
     Active Substance: TAMOXIFEN
     Route: 065
     Dates: start: 201408, end: 201509
  7. IBRANCE [Suspect]
     Active Substance: PALBOCICLIB
     Indication: BREAST CANCER METASTATIC
     Route: 048
     Dates: start: 201605, end: 201609
  8. XARELTO [Concomitant]
     Active Substance: RIVAROXABAN
     Route: 065
     Dates: start: 201702
  9. FASLODEX [Suspect]
     Active Substance: FULVESTRANT
     Indication: BREAST CANCER METASTATIC
     Route: 030
     Dates: start: 201511
  10. IBRANCE [Suspect]
     Active Substance: PALBOCICLIB
     Indication: BREAST CANCER METASTATIC
     Dosage: 125 MG DAILY 21 DAYS ON AND 7 DAYS OFF
     Route: 048
     Dates: start: 201805

REACTIONS (6)
  - Tumour marker increased [Recovering/Resolving]
  - Metastases to bone [Recovering/Resolving]
  - Drug tolerance decreased [Unknown]
  - Antiphospholipid antibodies positive [Recovered/Resolved]
  - Vaginal haemorrhage [Unknown]
  - Cerebrovascular accident [Recovered/Resolved]

NARRATIVE: CASE EVENT DATE: 2015
